FAERS Safety Report 5134592-4 (Version None)
Quarter: 2006Q4

REPORT INFORMATION
  Report Type: 
  Country: None (occurrence: None)
  Receive Date: 20061025
  Receipt Date: 20060817
  Transmission Date: 20070319
  Serious: Yes (Hospitalization)
  Sender: FDA-Public Use
  Company Number: 2006082413

PATIENT
  Age: 59 Year
  Sex: Male
  Weight: 142.6 kg

DRUGS (7)
  1. BLINDED TRIAL MEDICATION [Suspect]
     Indication: HIV INFECTION
     Route: 048
     Dates: start: 20060327
  2. SULFAMETHOXAZOLE + TRIMETHOPRIM [Suspect]
     Route: 048
     Dates: start: 20030602
  3. TRIZIVIR [Suspect]
     Indication: HIV INFECTION
     Route: 048
     Dates: start: 20050310
  4. DELAVIRDINE [Suspect]
     Indication: HIV INFECTION
     Dosage: 400MG THREE TIMES PER DAY
     Route: 048
     Dates: start: 20060323
  5. NORVIR [Concomitant]
     Indication: HIV INFECTION
     Dosage: 100MG TWICE PER DAY
     Route: 048
  6. INVIRASE [Concomitant]
     Dosage: 1G TWICE PER DAY
     Route: 048
     Dates: start: 20060619
  7. AZITHROMYCIN [Concomitant]
     Dates: start: 20060304

REACTIONS (14)
  - BLOOD CREATININE INCREASED [None]
  - CHILLS [None]
  - DEHYDRATION [None]
  - DIZZINESS [None]
  - DIZZINESS POSTURAL [None]
  - ELECTROCARDIOGRAM QT PROLONGED [None]
  - FALL [None]
  - FATIGUE [None]
  - FEELING ABNORMAL [None]
  - GAIT DISTURBANCE [None]
  - LOSS OF CONSCIOUSNESS [None]
  - ORTHOSTATIC HYPOTENSION [None]
  - PYREXIA [None]
  - SYNCOPE [None]
